FAERS Safety Report 7437161-6 (Version None)
Quarter: 2011Q2

REPORT INFORMATION
  Report Type: 
  Country: None (occurrence: None)
  Receive Date: 20110426
  Receipt Date: 20110414
  Transmission Date: 20111010
  Serious: Yes (Hospitalization, Disabling, Other)
  Sender: FDA-Public Use
  Company Number: JP-JNJFOC-20100801892

PATIENT
  Sex: Female
  Weight: 47 kg

DRUGS (14)
  1. DOXIL [Suspect]
     Dosage: CYCLE 3
     Route: 042
  2. ORGADRONE [Concomitant]
     Route: 042
  3. ORGADRONE [Concomitant]
     Indication: NAUSEA
     Route: 042
  4. DOXIL [Suspect]
     Indication: OVARIAN CANCER RECURRENT
     Dosage: CYCLE 1
     Route: 042
  5. DOXIL [Suspect]
     Dosage: CYCLE 2
     Route: 042
  6. RAMELTEON [Concomitant]
     Indication: NAUSEA
     Route: 042
  7. DEXALTIN [Concomitant]
     Indication: STOMATITIS
     Route: 061
  8. DOXIL [Suspect]
     Dosage: CYCLE 4
     Route: 042
  9. ETODOLAC [Concomitant]
     Indication: CANCER PAIN
     Route: 048
  10. DOXIL [Suspect]
     Dosage: CYCLE 4
     Route: 042
  11. DEXALTIN [Concomitant]
     Route: 061
  12. LOXONIN [Concomitant]
     Indication: ANALGESIC THERAPY
     Route: 048
  13. OXYCONTIN [Concomitant]
     Indication: CANCER PAIN
     Route: 048
  14. RAMELTEON [Concomitant]
     Route: 042

REACTIONS (6)
  - ULCER [None]
  - BLISTER [None]
  - NAUSEA [None]
  - STOMATITIS [None]
  - CONSTIPATION [None]
  - INTERSTITIAL LUNG DISEASE [None]
